FAERS Safety Report 14847871 (Version 1)
Quarter: 2018Q2

REPORT INFORMATION
  Report Type: Spontaneous
  Country: US (occurrence: US)
  Receive Date: 20180504
  Receipt Date: 20180504
  Transmission Date: 20180711
  Serious: No
  Sender: FDA-Public Use
  Company Number: US-ASTRAZENECA-2018SE45282

PATIENT
  Sex: Female

DRUGS (1)
  1. SYMBICORT [Suspect]
     Active Substance: BUDESONIDE\FORMOTEROL FUMARATE DIHYDRATE
     Dosage: JUST USED MY SYMBICORT WHEN I NEED IT, NOT TWO PUFFS TWO TIMES A DAY
     Route: 055

REACTIONS (2)
  - Intentional product misuse [Unknown]
  - Cough [Unknown]
